FAERS Safety Report 5081411-0 (Version None)
Quarter: 2006Q3

REPORT INFORMATION
  Report Type: 
  Country: None (occurrence: None)
  Receive Date: 20060720
  Receipt Date: 20060516
  Transmission Date: 20061208
  Serious: Yes (Death)
  Sender: FDA-Public Use
  Company Number: 2005124826

PATIENT
  Age: 58 Year
  Sex: Male

DRUGS (9)
  1. CELEBREX [Suspect]
     Indication: ARTHRITIS
     Dosage: 200 MG (200 MG,1 IN 1 D)
     Dates: start: 20020201, end: 20031229
  2. CELEBREX [Suspect]
     Indication: BACK PAIN
     Dosage: 200 MG (200 MG,1 IN 1 D)
     Dates: start: 20020201, end: 20031229
  3. CARDIAC THERAPY (CARDIAC THERAPY) [Concomitant]
  4. ADVIL [Concomitant]
  5. ALEVE [Concomitant]
  6. ASPIRIN [Concomitant]
  7. CODEINE (CODEINE) [Concomitant]
  8. DARVOCET [Concomitant]
  9. ACETAMINOPHEN [Concomitant]

REACTIONS (1)
  - MYOCARDIAL INFARCTION [None]
